FAERS Safety Report 17785052 (Version 1)
Quarter: 2020Q2

REPORT INFORMATION
  Report Type: Spontaneous
  Country: HR (occurrence: HR)
  Receive Date: 20200514
  Receipt Date: 20200514
  Transmission Date: 20200714
  Serious: Yes (Other)
  Sender: FDA-Public Use
  Company Number: HR-TEVA-2020-HR-1234533

PATIENT
  Sex: Female

DRUGS (6)
  1. KETONAL [KETOPROFEN] [Suspect]
     Active Substance: KETOPROFEN
     Dosage: 2 G
     Route: 048
     Dates: start: 20200425, end: 20200425
  2. DORETA [Suspect]
     Active Substance: ACETAMINOPHEN\TRAMADOL HYDROCHLORIDE
     Dosage: 2 BLISTERS YOU COME
     Route: 048
     Dates: start: 20200425, end: 20200425
  3. PRAXITEN 15 [Suspect]
     Active Substance: OXAZEPAM
     Dosage: SHE DRANK AN UNKNOWN AMOUNT
     Route: 048
     Dates: start: 20200425, end: 20200425
  4. ALCOHOL. [Suspect]
     Active Substance: ALCOHOL
     Dosage: SHE DRANK 1 L OF BRANDY
     Route: 048
     Dates: start: 20200425, end: 20200425
  5. NORMABEL [Suspect]
     Active Substance: DIAZEPAM
     Dosage: DRANK A BOX OF NORMABEL 5 MG, 150 MG
     Route: 048
     Dates: start: 20200425, end: 20200425
  6. ALOPURINOL [Suspect]
     Active Substance: ALLOPURINOL
     Dosage: 1 BLISTER OF ALLOPURINOL
     Route: 048
     Dates: start: 20200425, end: 20200425

REACTIONS (3)
  - Suicide attempt [Unknown]
  - Somnolence [Unknown]
  - Intentional overdose [Unknown]

NARRATIVE: CASE EVENT DATE: 20200425
